FAERS Safety Report 7445497-8 (Version None)
Quarter: 2011Q2

REPORT INFORMATION
  Report Type: 
  Country: None (occurrence: None)
  Receive Date: 20110429
  Receipt Date: 20110426
  Transmission Date: 20111010
  Serious: Yes (Other)
  Sender: FDA-Public Use
  Company Number: DE-PFIZER INC-2011089247

PATIENT
  Sex: Female

DRUGS (1)
  1. TREVILOR RETARD [Suspect]
     Dosage: 75 MG, UNK

REACTIONS (3)
  - DRUG EFFECT DECREASED [None]
  - NERVOUSNESS [None]
  - GASTRIC BYPASS [None]
